FAERS Safety Report 20392458 (Version 1)
Quarter: 2022Q1

REPORT INFORMATION
  Report Type: Spontaneous
  Country: US (occurrence: None)
  Receive Date: 20220128
  Receipt Date: 20220128
  Transmission Date: 20220423
  Serious: No
  Sender: FDA-Public Use
  Company Number: 2022A009082

PATIENT
  Sex: Male
  Weight: 108.9 kg

DRUGS (1)
  1. SYMBICORT [Suspect]
     Active Substance: BUDESONIDE\FORMOTEROL FUMARATE DIHYDRATE
     Indication: Asthma
     Dosage: TWO PUFFS TWICE A DAY
     Route: 055

REACTIONS (8)
  - Asthma [Unknown]
  - Laryngitis [Unknown]
  - Dysphonia [Recovering/Resolving]
  - Aphonia [Unknown]
  - Candida infection [Unknown]
  - Chronic obstructive pulmonary disease [Unknown]
  - Wrong technique in device usage process [Unknown]
  - Intentional product use issue [Unknown]
